FAERS Safety Report 24540126 (Version 1)
Quarter: 2024Q4

REPORT INFORMATION
  Report Type: Spontaneous
  Country: US (occurrence: US)
  Receive Date: 20241023
  Receipt Date: 20241023
  Transmission Date: 20250115
  Serious: No
  Sender: COVIS PHARMA GMBH
  Company Number: US-Covis Pharma GmbH-2024COV01181

PATIENT
  Sex: Female

DRUGS (2)
  1. ALVESCO [Suspect]
     Active Substance: CICLESONIDE
     Indication: Asthma
     Route: 055
  2. ALVESCO [Suspect]
     Active Substance: CICLESONIDE
     Route: 055

REACTIONS (3)
  - Wheezing [Recovering/Resolving]
  - Drug dose omission by device [Unknown]
  - Product administration error [Unknown]
